FAERS Safety Report 10826784 (Version 5)
Quarter: 2015Q2

REPORT INFORMATION
  Report Type: Spontaneous
  Country: US (occurrence: US)
  Receive Date: 20150219
  Receipt Date: 20150409
  Transmission Date: 20150821
  Serious: Yes (Death)
  Sender: FDA-Public Use
  Company Number: US-009507513-1502USA007996

PATIENT
  Age: 56 Year
  Sex: Male
  Weight: 47.17 kg

DRUGS (7)
  1. EMEND [Suspect]
     Active Substance: APREPITANT
     Dosage: 80 MG, UNK
     Route: 048
  2. EMEND [Suspect]
     Active Substance: APREPITANT
     Dosage: UNK
     Route: 048
     Dates: end: 20150205
  3. KYTRIL [Concomitant]
     Active Substance: GRANISETRON HYDROCHLORIDE
     Dosage: UNK
  4. CISPLATIN. [Concomitant]
     Active Substance: CISPLATIN
     Indication: HEAD AND NECK CANCER
     Dosage: 21 DAY CYCLE
  5. TAXOTERE [Concomitant]
     Active Substance: DOCETAXEL
     Indication: HEAD AND NECK CANCER
     Dosage: 21 DAY CYCLE
  6. ZOFRAN [Concomitant]
     Active Substance: ONDANSETRON HYDROCHLORIDE
     Dosage: UNK
  7. EMEND [Suspect]
     Active Substance: APREPITANT
     Indication: PROPHYLAXIS OF NAUSEA AND VOMITING
     Dosage: 125 MG, UNK
     Route: 048

REACTIONS (1)
  - Death [Fatal]

NARRATIVE: CASE EVENT DATE: 20150213
